FAERS Safety Report 7903398-2 (Version None)
Quarter: 2011Q4

REPORT INFORMATION
  Report Type: 
  Country: None (occurrence: None)
  Receive Date: 20111109
  Receipt Date: 20111027
  Transmission Date: 20120403
  Serious: Yes (Hospitalization, Other)
  Sender: FDA-Public Use
  Company Number: US-AMGEN-USASP2011024391

PATIENT
  Age: 63 Year
  Sex: Female

DRUGS (3)
  1. ENBREL [Suspect]
     Dosage: 50 MG, QWK
     Dates: start: 20000101
  2. METHOTREXATE [Concomitant]
     Dosage: UNK
  3. ENBREL [Suspect]
     Indication: RHEUMATOID ARTHRITIS
     Dosage: 50 MG, QWK
     Dates: start: 20000101

REACTIONS (12)
  - MOBILITY DECREASED [None]
  - SINUS CONGESTION [None]
  - SINUSITIS [None]
  - BASAL CELL CARCINOMA [None]
  - PARANASAL SINUS HYPERSECRETION [None]
  - OPEN WOUND [None]
  - PNEUMONIA [None]
  - CYST [None]
  - SQUAMOUS CELL CARCINOMA [None]
  - ARTHRALGIA [None]
  - ABSCESS [None]
  - FATIGUE [None]
